FAERS Safety Report 23842328 (Version 1)
Quarter: 2024Q2

REPORT INFORMATION
  Report Type: Spontaneous
  Country: US (occurrence: US)
  Receive Date: 20240510
  Receipt Date: 20240510
  Transmission Date: 20240716
  Serious: Yes (Other)
  Sender: FDA-Public Use
  Company Number: US-PFIZER INC-202400104000

PATIENT
  Age: 52 Year
  Sex: Male

DRUGS (1)
  1. SOMAVERT [Suspect]
     Active Substance: PEGVISOMANT
     Dosage: INJECT 20 MG UNDER THE SKIN DAILY
     Route: 058

REACTIONS (1)
  - Neoplasm [Recovered/Resolved]
